FAERS Safety Report 22197250 (Version 2)
Quarter: 2023Q2

REPORT INFORMATION
  Report Type: Spontaneous
  Country: US (occurrence: US)
  Receive Date: 20230411
  Receipt Date: 20230601
  Transmission Date: 20230721
  Serious: Yes (Hospitalization, Disabling)
  Sender: FDA-Public Use
  Company Number: US-PFIZER INC-PV202300064772

PATIENT
  Age: 72 Year
  Sex: Male
  Weight: 95.238 kg

DRUGS (3)
  1. NARDIL [Suspect]
     Active Substance: PHENELZINE SULFATE
     Indication: Agoraphobia
     Dosage: 60 MG (4/DAY)
     Route: 048
     Dates: start: 1979, end: 2006
  2. NARDIL [Suspect]
     Active Substance: PHENELZINE SULFATE
     Indication: Depression
  3. NARDIL [Suspect]
     Active Substance: PHENELZINE SULFATE
     Indication: Panic disorder

REACTIONS (4)
  - Bipolar disorder [Recovered/Resolved]
  - Drug ineffective [Unknown]
  - Energy increased [Unknown]
  - Mania [Unknown]

NARRATIVE: CASE EVENT DATE: 20030420
